FAERS Safety Report 6554168-1 (Version None)
Quarter: 2010Q1

REPORT INFORMATION
  Report Type: 
  Country: None (occurrence: None)
  Receive Date: 20100127
  Receipt Date: 20100116
  Transmission Date: 20100710
  Serious: Yes (Hospitalization)
  Sender: FDA-Public Use
  Company Number: US-JNJFOC-20100106836

PATIENT
  Sex: Female

DRUGS (4)
  1. TYLENOL 8 HOUR MUSCLES + PAIN [Suspect]
     Route: 048
  2. TYLENOL 8 HOUR MUSCLES + PAIN [Suspect]
     Indication: ARTHRALGIA
     Route: 048
  3. EXTRA STRENGTH TYLENOL [Suspect]
     Route: 048
  4. EXTRA STRENGTH TYLENOL [Suspect]
     Indication: ARTHRALGIA
     Route: 048

REACTIONS (5)
  - ABDOMINAL PAIN UPPER [None]
  - GASTROENTERITIS [None]
  - NAUSEA [None]
  - PRODUCT QUALITY ISSUE [None]
  - VOMITING [None]
